FAERS Safety Report 5541782-5 (Version None)
Quarter: 2007Q4

REPORT INFORMATION
  Report Type: 
  Country: None (occurrence: None)
  Receive Date: 20071210
  Receipt Date: 20071203
  Transmission Date: 20080405
  Serious: Yes (Other)
  Sender: FDA-Public Use
  Company Number: B0491701A

PATIENT
  Age: 26 Year
  Sex: Male
  Weight: 72.2 kg

DRUGS (3)
  1. KIVEXA [Suspect]
     Indication: HIV INFECTION
     Route: 048
     Dates: start: 20071001
  2. EFAVIRENZ [Suspect]
     Indication: HIV INFECTION
     Dosage: 600MG PER DAY
     Route: 048
     Dates: start: 20071001
  3. ZOPICLONE [Concomitant]
     Dosage: 7.5MG PER DAY
     Route: 048
     Dates: start: 20071008

REACTIONS (6)
  - DYSPNOEA [None]
  - EUPHORIC MOOD [None]
  - HYPERHIDROSIS [None]
  - HYPERSENSITIVITY [None]
  - RASH MACULAR [None]
  - SLEEP DISORDER [None]
